FAERS Safety Report 6546893-3 (Version None)
Quarter: 2010Q1

REPORT INFORMATION
  Report Type: 
  Country: None (occurrence: None)
  Receive Date: 20100122
  Receipt Date: 20091222
  Transmission Date: 20100710
  Serious: No
  Sender: FDA-Public Use
  Company Number: US-BAYER-200936333NA

PATIENT
  Sex: Male

DRUGS (3)
  1. ULTRAVIST PHARMACY BULK PACKAGE [Suspect]
     Indication: COMPUTERISED TOMOGRAM
     Dosage: TOTAL DAILY DOSE: 100 ML
     Route: 042
     Dates: start: 20090806, end: 20090806
  2. ORAL CONTRAST [Concomitant]
  3. ZYRTEC [Concomitant]

REACTIONS (2)
  - COUGH [None]
  - URTICARIA [None]
